FAERS Safety Report 5206671-4 (Version None)
Quarter: 2007Q1

REPORT INFORMATION
  Report Type: 
  Country: None (occurrence: None)
  Receive Date: 20070109
  Receipt Date: 20061225
  Transmission Date: 20070707
  Serious: Yes (Hospitalization)
  Sender: FDA-Public Use
  Company Number: GXKR2006JP08495

PATIENT
  Age: 73 Year
  Sex: Female

DRUGS (1)
  1. AMANTADINE HCL [Suspect]
     Indication: PARKINSONISM
     Dosage: 300 MG, QD, ORAL
     Route: 048
     Dates: start: 20050217

REACTIONS (12)
  - BEDRIDDEN [None]
  - CEREBRAL INFARCTION [None]
  - COMA [None]
  - DEMENTIA [None]
  - DRUG TOXICITY [None]
  - GAIT DISTURBANCE [None]
  - LACUNAR INFARCTION [None]
  - MYOCLONUS [None]
  - PYREXIA [None]
  - REFLEXES ABNORMAL [None]
  - SOMNOLENCE [None]
  - STATUS EPILEPTICUS [None]
